FAERS Safety Report 4766756-3 (Version None)
Quarter: 2005Q3

REPORT INFORMATION
  Report Type: 
  Country: None (occurrence: None)
  Receive Date: 20050912
  Receipt Date: 20050406
  Transmission Date: 20060218
  Serious: Yes (Hospitalization, Other)
  Sender: FDA-Public Use
  Company Number: US-MERCK-0504USA01013

PATIENT
  Age: 91 Year
  Sex: Male
  Weight: 85 kg

DRUGS (16)
  1. VIOXX [Suspect]
     Indication: ARTHRITIS
     Route: 048
     Dates: start: 20000801, end: 20041001
  2. VIOXX [Suspect]
     Route: 048
     Dates: start: 20000801, end: 20040930
  3. VIOXX [Suspect]
     Route: 048
     Dates: start: 20000801, end: 20041001
  4. LASIX [Concomitant]
     Route: 065
  5. ZOLOFT [Concomitant]
     Route: 065
  6. IRON (UNSPECIFIED) [Concomitant]
     Route: 065
  7. DETROL [Concomitant]
     Route: 065
  8. ASPIRIN [Concomitant]
     Route: 065
  9. ASPIRIN [Concomitant]
     Route: 065
  10. FLOMAX [Concomitant]
     Route: 065
  11. VITAMINS (UNSPECIFIED) [Concomitant]
     Route: 065
  12. CYANOCOBALAMIN [Concomitant]
     Route: 065
  13. OXYBUTYNIN CHLORIDE [Concomitant]
     Route: 065
  14. TYLENOL [Concomitant]
     Route: 065
  15. EXTRA STRENGTH TYLENOL [Concomitant]
     Route: 065
  16. ASCORBIC ACID [Concomitant]
     Route: 065

REACTIONS (30)
  - ABNORMAL BEHAVIOUR [None]
  - ABNORMAL DREAMS [None]
  - ASTHENIA [None]
  - BACK PAIN [None]
  - CARDIAC FAILURE CONGESTIVE [None]
  - CARDIOMEGALY [None]
  - CATARACT [None]
  - CONTUSION [None]
  - CORONARY ARTERY ATHEROSCLEROSIS [None]
  - CORONARY ARTERY DISEASE [None]
  - DEPRESSION [None]
  - DISORIENTATION [None]
  - DYSPNOEA [None]
  - EJECTION FRACTION DECREASED [None]
  - FALL [None]
  - FATIGUE [None]
  - INCONTINENCE [None]
  - ISCHAEMIC CARDIOMYOPATHY [None]
  - LUNG INFILTRATION [None]
  - MYOCARDIAL INFARCTION [None]
  - MYOCARDIAL ISCHAEMIA [None]
  - ORTHOSTATIC HYPOTENSION [None]
  - PLEURAL EFFUSION [None]
  - PULMONARY MASS [None]
  - PULMONARY OEDEMA [None]
  - SLEEP DISORDER [None]
  - VASCULAR DEMENTIA [None]
  - VEIN DISORDER [None]
  - WEIGHT DECREASED [None]
  - WEIGHT INCREASED [None]
